FAERS Safety Report 18734870 (Version 1)
Quarter: 2021Q1

REPORT INFORMATION
  Report Type: Spontaneous
  Country: JP (occurrence: JP)
  Receive Date: 20210113
  Receipt Date: 20210113
  Transmission Date: 20210419
  Serious: Yes (Hospitalization, Other)
  Sender: FDA-Public Use
  Company Number: JP-PFIZER INC-2021006309

PATIENT
  Age: 60 Year
  Sex: Male

DRUGS (2)
  1. SUTENT [Suspect]
     Active Substance: SUNITINIB MALATE
     Dosage: 25 MG, CYCLIC (/DAY, TWO WEEKS OF DOSING AND A ONE?WEEK INTERVAL)
  2. SUTENT [Suspect]
     Active Substance: SUNITINIB MALATE
     Indication: RENAL CELL CARCINOMA
     Dosage: 37.5 MG, CYCLIC (/DAY, TWO WEEKS OF DOSING AND A ONE?WEEK INTERVAL)

REACTIONS (3)
  - Gastrointestinal haemorrhage [Recovering/Resolving]
  - Platelet count decreased [Unknown]
  - Oesophageal ulcer [Recovering/Resolving]
